FAERS Safety Report 20541412 (Version 1)
Quarter: 2022Q1

REPORT INFORMATION
  Report Type: Spontaneous
  Country: JP (occurrence: JP)
  Receive Date: 20220302
  Receipt Date: 20220302
  Transmission Date: 20220423
  Serious: Yes (Other)
  Sender: FDA-Public Use
  Company Number: JP-BAYER-2021A224150

PATIENT
  Age: 65 Year
  Sex: Female

DRUGS (2)
  1. XARELTO [Suspect]
     Active Substance: RIVAROXABAN
     Indication: Product used for unknown indication
     Dosage: 15 MG
     Route: 048
     Dates: end: 20210930
  2. XARELTO [Suspect]
     Active Substance: RIVAROXABAN
     Dosage: 10 MG
     Route: 048
     Dates: start: 20211008

REACTIONS (3)
  - Neoplasm malignant [Unknown]
  - Tumour haemorrhage [Recovering/Resolving]
  - Metastasis [Unknown]
